FAERS Safety Report 23621152 (Version 1)
Quarter: 2024Q1

REPORT INFORMATION
  Report Type: Spontaneous
  Country: GB (occurrence: GB)
  Receive Date: 20240312
  Receipt Date: 20240312
  Transmission Date: 20240409
  Serious: Yes (Life-Threatening, Hospitalization, Other)
  Sender: FDA-Public Use
  Company Number: GB-TEVA-VS-3148317

PATIENT
  Age: 63 Year
  Sex: Male
  Weight: 80.5 kg

DRUGS (18)
  1. LENALIDOMIDE [Suspect]
     Active Substance: LENALIDOMIDE
     Indication: Follicular lymphoma
     Dosage: DAYS 1 TO 21 FOR 12 CYCLES
     Route: 048
     Dates: start: 20230614
  2. LENALIDOMIDE [Suspect]
     Active Substance: LENALIDOMIDE
     Indication: Follicular lymphoma
     Dosage: DAYS 1 TO 21 FOR 12 CYCLES
     Route: 048
     Dates: start: 20230712
  3. LENALIDOMIDE [Suspect]
     Active Substance: LENALIDOMIDE
     Indication: Follicular lymphoma
     Dosage: MOST RECENT DOSE OF LENALIDOMIDE PRIOR TO SAE (SECOND EPISODE) WAS ON 30/MAY/2023
     Route: 065
     Dates: start: 20230627, end: 20230919
  4. LENALIDOMIDE [Suspect]
     Active Substance: LENALIDOMIDE
     Indication: Follicular lymphoma
     Dosage: MOST RECENT DOSE OF LENALIDOMIDE PRIOR TO SAE (FIRST EPISODE)
     Route: 065
     Dates: start: 20230530
  5. LENALIDOMIDE [Suspect]
     Active Substance: LENALIDOMIDE
     Indication: Follicular lymphoma
     Dosage: 10 MILLIGRAM, QD (DAYS 1 TO 21 FOR 12 CYCLES)
     Route: 065
     Dates: start: 20230315
  6. LENALIDOMIDE [Suspect]
     Active Substance: LENALIDOMIDE
     Indication: Follicular lymphoma
     Dosage: MOST RECENT DOSE OF LENALIDOMIDE PRIOR TO SAE (FIRST EPISODE) WAS ON 30/MAY/2023;
     Route: 065
     Dates: end: 20230919
  7. PEGFILGRASTIM [Concomitant]
     Active Substance: PEGFILGRASTIM
     Indication: Product used for unknown indication
     Dosage: UNK
     Dates: start: 20230607
  8. PEGFILGRASTIM [Concomitant]
     Active Substance: PEGFILGRASTIM
     Indication: Product used for unknown indication
     Dosage: UNK
     Dates: start: 20230703
  9. RITUXIMAB [Suspect]
     Active Substance: RITUXIMAB
     Indication: Follicular lymphoma
     Dosage: FOR 5 CYCLES
     Route: 042
     Dates: start: 20230507
  10. RITUXIMAB [Suspect]
     Active Substance: RITUXIMAB
     Indication: Follicular lymphoma
     Dosage: FOR 5 CYCLES
     Route: 042
     Dates: start: 20230316
  11. RITUXIMAB [Suspect]
     Active Substance: RITUXIMAB
     Indication: Follicular lymphoma
     Dosage: MOST RECENT DOSE OF RITUXIMAB PRIOR TO SAE (FIRST AND SECOND EPISODE)
     Route: 065
     Dates: start: 20230510
  12. RITUXIMAB [Suspect]
     Active Substance: RITUXIMAB
     Indication: Follicular lymphoma
     Dosage: UNK
     Route: 065
  13. RITUXIMAB [Suspect]
     Active Substance: RITUXIMAB
     Indication: Follicular lymphoma
     Dosage: 800 MILLIGRAM (FOR 5 CYCLES)
     Route: 065
     Dates: start: 20230705
  14. TAFASITAMAB [Suspect]
     Active Substance: TAFASITAMAB
     Indication: Follicular lymphoma
     Dosage: MOST RECENT DOSE OF PLACEBO PRIOR TO SAE (FIRST EPISODE)
     Route: 065
     Dates: start: 20230531
  15. TAFASITAMAB [Suspect]
     Active Substance: TAFASITAMAB
     Indication: Follicular lymphoma
     Dosage: FOR 12 CYCLES WEEKLY THE FIRST 3 CYCLES AND Q2W.ON 13/SEP/2023, LAST DOSE OF INCMOR00208/PLACEBO...
     Route: 065
     Dates: start: 20230315
  16. TAFASITAMAB [Suspect]
     Active Substance: TAFASITAMAB
     Indication: Follicular lymphoma
     Dosage: FOR 12 CYCLES WEEKLY THE FIRST 3 CYCLES AND Q2W
     Route: 065
     Dates: start: 20230315, end: 20230913
  17. TAFASITAMAB [Suspect]
     Active Substance: TAFASITAMAB
     Indication: Follicular lymphoma
     Dosage: UNK
     Route: 065
     Dates: start: 20230621
  18. TAFASITAMAB [Suspect]
     Active Substance: TAFASITAMAB
     Indication: Follicular lymphoma
     Dosage: UNK
     Route: 065
     Dates: start: 20230719

REACTIONS (2)
  - Pneumonia [Unknown]
  - Neutrophil count decreased [Recovered/Resolved]

NARRATIVE: CASE EVENT DATE: 20230605
